FAERS Safety Report 8803121 (Version 1)
Quarter: 2012Q4

REPORT INFORMATION
  Report Type: 
  Country: TW (occurrence: TW)
  Receive Date: 20120924
  Receipt Date: 20120924
  Transmission Date: 20130627
  Serious: Yes (Hospitalization, Other)
  Sender: FDA-Public Use
  Company Number: TW-JNJFOC-20120905182

PATIENT
  Sex: Female

DRUGS (2)
  1. HALDOL [Suspect]
     Indication: PROPHYLAXIS
     Dosage: STAT  immediately (5mg dosage-50 mg dose)
     Route: 030
     Dates: start: 20120226, end: 20120226
  2. LODOPIN [Suspect]
     Indication: PROPHYLAXIS
     Dosage: at bed time (50 mg dosage-100 mg dose)
     Route: 048
     Dates: start: 20120216, end: 20120227

REACTIONS (11)
  - Muscle tightness [Unknown]
  - Hypokinesia [Unknown]
  - Musculoskeletal stiffness [Unknown]
  - Blood creatine phosphokinase increased [Not Recovered/Not Resolved]
  - Aspartate aminotransferase increased [Unknown]
  - Panic disorder [Unknown]
  - Anxiety [Unknown]
  - Fear [Unknown]
  - Decreased eye contact [Unknown]
  - Tremor [Unknown]
  - Alanine aminotransferase increased [Unknown]
